FAERS Safety Report 7360708-5 (Version None)
Quarter: 2011Q1

REPORT INFORMATION
  Report Type: 
  Country: None (occurrence: None)
  Receive Date: 20110318
  Receipt Date: 20110314
  Transmission Date: 20110831
  Serious: Yes (Hospitalization)
  Sender: FDA-Public Use
  Company Number: GB-BRISTOL-MYERS SQUIBB COMPANY-15606379

PATIENT
  Age: 83 Year
  Sex: Male

DRUGS (3)
  1. CARBOPLATIN [Suspect]
     Dosage: 20APR10-20APR10, UNK-14MAY10.
     Route: 042
     Dates: start: 20100420, end: 20100514
  2. ETOPOSIDE [Suspect]
     Dosage: ALSO TAKEN 50MG ORAL:21APR10-22APR10,UNK-14MAY2010.169MG:20APR10-20APR10.
     Route: 042
     Dates: start: 20100420
  3. DALTEPARIN SODIUM [Concomitant]
     Dates: start: 20100305, end: 20100819

REACTIONS (2)
  - HYPERKALAEMIA [None]
  - RENAL IMPAIRMENT [None]
